FAERS Safety Report 18262366 (Version 1)
Quarter: 2020Q3

REPORT INFORMATION
  Report Type: Spontaneous
  Country: AR (occurrence: AR)
  Receive Date: 20200913
  Receipt Date: 20200913
  Transmission Date: 20201103
  Serious: No
  Sender: FDA-Public Use
  Company Number: None

PATIENT
  Age: 75 Year
  Sex: Female
  Weight: 62 kg

DRUGS (3)
  1. LEVOTHYROXINE 50UG [Concomitant]
  2. LANZOPRAZOLE 30MG [Concomitant]
  3. LANSOPRAZOL (LANZOPRAL) 30MG [Suspect]
     Active Substance: LANSOPRAZOLE
     Indication: GASTRITIS
     Route: 048

REACTIONS (4)
  - Bone deformity [None]
  - Skull fracture [None]
  - Sternal fracture [None]
  - Pain [None]

NARRATIVE: CASE EVENT DATE: 20200608
